FAERS Safety Report 20500713 (Version 2)
Quarter: 2022Q1

REPORT INFORMATION
  Report Type: Spontaneous
  Country: IL (occurrence: None)
  Receive Date: 20220222
  Receipt Date: 20220228
  Transmission Date: 20220423
  Serious: Yes (Hospitalization)
  Sender: FDA-Public Use
  Company Number: IL-ROCHE-3026544

PATIENT
  Age: 59 Year
  Sex: Male

DRUGS (2)
  1. OCRELIZUMAB [Suspect]
     Active Substance: OCRELIZUMAB
     Indication: Secondary progressive multiple sclerosis
     Dosage: NUMBER OF FULL DOSES RECEIVED- 8, LAST INFUSION/ASSUMPTION DATE BEFORE COVID-19 INFECTION- 13/JUN/20
     Route: 065
     Dates: start: 201707
  2. AVONEX [Concomitant]
     Active Substance: INTERFERON BETA-1A

REACTIONS (2)
  - COVID-19 [Unknown]
  - Expanded disability status scale [Unknown]

NARRATIVE: CASE EVENT DATE: 20211020
